FAERS Safety Report 9355167 (Version 2)
Quarter: 2013Q3

REPORT INFORMATION
  Report Type: Report from Study
  Country: IL (occurrence: IL)
  Receive Date: 20130619
  Receipt Date: 20130711
  Transmission Date: 20140515
  Serious: Yes (Other)
  Sender: FDA-Public Use
  Company Number: PHHY2012IL109500

PATIENT
  Age: 37 Year
  Sex: Female

DRUGS (1)
  1. SANDOSTATIN LAR [Suspect]
     Indication: CARCINOID TUMOUR
     Dosage: 40 MG, QMO
     Dates: start: 20110301, end: 20121106

REACTIONS (3)
  - Klinefelter^s syndrome [Unknown]
  - Abortion [Unknown]
  - Maternal exposure during pregnancy [Unknown]
